FAERS Safety Report 5939179-9 (Version None)
Quarter: 2008Q4

REPORT INFORMATION
  Report Type: 
  Country: None (occurrence: None)
  Receive Date: 20081103
  Receipt Date: 20081023
  Transmission Date: 20090506
  Serious: Yes (Other)
  Sender: FDA-Public Use
  Company Number: FR-PFIZER INC-2008090173

PATIENT
  Age: 61 Year
  Sex: Male

DRUGS (2)
  1. TAHOR [Suspect]
  2. OMEGA-3 TRIGLYCERIDES [Suspect]

REACTIONS (1)
  - BLOOD AMYLASE INCREASED [None]
